FAERS Safety Report 18155753 (Version 2)
Quarter: 2020Q3

REPORT INFORMATION
  Report Type: Spontaneous
  Country: US (occurrence: US)
  Receive Date: 20200817
  Receipt Date: 20200821
  Transmission Date: 20201103
  Serious: Yes (Disabling)
  Sender: FDA-Public Use
  Company Number: US-ROCHE-2658603

PATIENT
  Age: 33 Year
  Sex: Female
  Weight: 61.74 kg

DRUGS (4)
  1. HERCEPTIN [Suspect]
     Active Substance: TRASTUZUMAB
     Indication: TRIPLE POSITIVE BREAST CANCER
     Dosage: ONGOING:YES
     Route: 042
     Dates: start: 20200223
  2. PERJETA [Suspect]
     Active Substance: PERTUZUMAB
     Indication: TRIPLE POSITIVE BREAST CANCER
     Dosage: ONGOING:YES
     Route: 042
     Dates: start: 20200223
  3. TAXOTERE [Concomitant]
     Active Substance: DOCETAXEL
  4. CARBOPLATIN. [Concomitant]
     Active Substance: CARBOPLATIN

REACTIONS (2)
  - Neuralgia [Not Recovered/Not Resolved]
  - Pruritus [Not Recovered/Not Resolved]

NARRATIVE: CASE EVENT DATE: 20200605
